FAERS Safety Report 6085600-8 (Version None)
Quarter: 2009Q1

REPORT INFORMATION
  Report Type: 
  Country: None (occurrence: None)
  Receive Date: 20090217
  Receipt Date: 20090217
  Transmission Date: 20090719
  Serious: Yes (Other)
  Sender: FDA-Public Use
  Company Number: None

PATIENT
  Age: 55 Year
  Sex: Male
  Weight: 106 kg

DRUGS (9)
  1. TORISEL [Suspect]
     Indication: RENAL CELL CARCINOMA
     Dosage: 25 MG WEEKLY IV
     Route: 042
     Dates: start: 20080715, end: 20080917
  2. LISINOPRIL [Suspect]
     Indication: HYPERTENSION
     Dosage: 10 MG DAILY PO
     Route: 048
  3. METOPROLOL TARTRATE [Suspect]
  4. HYDROCHLOROTHIAZIDE [Concomitant]
  5. GEMFIBROZIL [Concomitant]
  6. FERROUS SULFATE TAB [Concomitant]
  7. MULTI-VITAMIN [Concomitant]
  8. ORAL WOUND RINSE [Concomitant]
  9. PROCHLORPERAZINE [Concomitant]

REACTIONS (1)
  - ANGIOEDEMA [None]
